FAERS Safety Report 8869515 (Version 1)
Quarter: 2012Q4

REPORT INFORMATION
  Report Type: 
  Country: JP (occurrence: JP)
  Receive Date: 20121028
  Receipt Date: 20121028
  Transmission Date: 20130627
  Serious: Yes (Hospitalization, Other)
  Sender: FDA-Public Use
  Company Number: JP-TEVA-365068ISR

PATIENT
  Age: 8 None
  Sex: Female

DRUGS (4)
  1. DEXAMETHASONE [Suspect]
     Indication: MULTIPLE MYELOMA
     Dosage: 20mg on d1-4, 9-12, 17-20 of 28-d cycle for 1st cycle; then 12mg on d1, 2, 8, 9, 15, 16
     Route: 048
     Dates: start: 201008, end: 201012
  2. DEXAMETHASONE [Interacting]
     Indication: MULTIPLE MYELOMA
     Dosage: 12mg on d1, 2, 8, 9, 15, 16 of 28-d cycle from 2nd cycle
     Route: 048
     Dates: start: 201008, end: 201012
  3. LENALIDOMIDE [Interacting]
     Indication: MULTIPLE MYELOMA
     Dosage: 5mg daily on d1-21 of 28-d cycle; increased to 10mg daily from 3rd cycle
     Route: 048
     Dates: start: 201008, end: 201012
  4. LENALIDOMIDE [Interacting]
     Indication: MULTIPLE MYELOMA
     Dosage: 10mg daily on d1-21 of 28-d cycle from 3rd cycle
     Route: 048
     Dates: start: 201008, end: 201012

REACTIONS (5)
  - Tetany [Unknown]
  - Blood alkaline phosphatase increased [Unknown]
  - Osteosclerosis [Unknown]
  - Drug interaction [Unknown]
  - Pancytopenia [Unknown]
